FAERS Safety Report 16208831 (Version 1)
Quarter: 2019Q2

REPORT INFORMATION
  Report Type: Spontaneous
  Country: US (occurrence: US)
  Receive Date: 20190417
  Receipt Date: 20190417
  Transmission Date: 20190711
  Serious: Yes (Other)
  Sender: FDA-Public Use
  Company Number: US-BAYER-2019-073062

PATIENT
  Sex: Male

DRUGS (1)
  1. MIRALAX [Suspect]
     Active Substance: POLYETHYLENE GLYCOL 3350
     Indication: GASTROINTESTINAL DISORDER
     Dosage: 2 TABLESPOONS, QD
     Route: 048
     Dates: start: 201810

REACTIONS (3)
  - Renal impairment [Unknown]
  - Thyroid cancer [None]
  - Extra dose administered [None]

NARRATIVE: CASE EVENT DATE: 201901
